FAERS Safety Report 10460101 (Version 2)
Quarter: 2014Q3

REPORT INFORMATION
  Report Type: Spontaneous
  Country: GB (occurrence: GB)
  Receive Date: 20140917
  Receipt Date: 20140930
  Transmission Date: 20150326
  Serious: Yes (Disabling)
  Sender: FDA-Public Use
  Company Number: GB-WATSON-2014-19936

PATIENT
  Age: 56 Year
  Sex: Female

DRUGS (1)
  1. CEFUROXIME. [Suspect]
     Active Substance: CEFUROXIME
     Indication: PROPHYLAXIS
     Dosage: 10-12.5 MG TO THE LEFT EYE, SINGLE
     Route: 031
     Dates: start: 20140726, end: 20140727

REACTIONS (5)
  - Visual impairment [Not Recovered/Not Resolved]
  - Accidental overdose [Unknown]
  - Wrong technique in drug usage process [Unknown]
  - Off label use [Unknown]
  - Retinal disorder [Not Recovered/Not Resolved]

NARRATIVE: CASE EVENT DATE: 20140726
